FAERS Safety Report 21713386 (Version 1)
Quarter: 2022Q4

REPORT INFORMATION
  Report Type: Spontaneous
  Country: US (occurrence: US)
  Receive Date: 20221212
  Receipt Date: 20221212
  Transmission Date: 20230112
  Serious: Yes (Death, Hospitalization, Other)
  Sender: FDA-Public Use
  Company Number: US-APOTEX-2022AP016569

PATIENT
  Age: 16 Year
  Sex: Female

DRUGS (1)
  1. METFORMIN [Suspect]
     Active Substance: METFORMIN HYDROCHLORIDE
     Indication: Product used for unknown indication
     Dosage: UNK
     Route: 065

REACTIONS (7)
  - Hepatotoxicity [Fatal]
  - Acute kidney injury [Fatal]
  - Hypotension [Fatal]
  - Metabolic acidosis [Fatal]
  - Osmolar gap abnormal [Fatal]
  - Anion gap abnormal [Fatal]
  - Toxicity to various agents [Fatal]
